FAERS Safety Report 8809663 (Version 1)
Quarter: 2012Q4

REPORT INFORMATION
  Report Type: 
  Country: US (occurrence: US)
  Receive Date: 20120926
  Receipt Date: 20120926
  Transmission Date: 20130627
  Serious: Yes (Other)
  Sender: FDA-Public Use
  Company Number: US-ROCHE-1125797

PATIENT
  Sex: Female

DRUGS (5)
  1. XELODA [Suspect]
     Indication: BREAST CANCER FEMALE
     Route: 065
  2. ARIMIDEX [Concomitant]
  3. TAXOL [Concomitant]
  4. FASLODEX [Concomitant]
  5. NAVELBINE [Concomitant]

REACTIONS (3)
  - Disease progression [Unknown]
  - Neuropathy peripheral [Unknown]
  - Weight decreased [Unknown]
